FAERS Safety Report 14164510 (Version 1)
Quarter: 2017Q4

REPORT INFORMATION
  Report Type: Spontaneous
  Country: US (occurrence: US)
  Receive Date: 20171107
  Receipt Date: 20171107
  Transmission Date: 20180321
  Serious: Yes (Other)
  Sender: FDA-Public Use
  Company Number: US-ROCHE-2014722

PATIENT
  Sex: Female

DRUGS (9)
  1. CYCLOPHOSPHAMIDE. [Concomitant]
     Active Substance: CYCLOPHOSPHAMIDE
  2. TAXOTERE [Concomitant]
     Active Substance: DOCETAXEL
  3. FASLODEX [Concomitant]
     Active Substance: FULVESTRANT
     Route: 065
  4. HERCEPTIN [Suspect]
     Active Substance: TRASTUZUMAB
     Indication: HER-2 POSITIVE BREAST CANCER
     Route: 065
     Dates: start: 201502
  5. IBRANCE [Concomitant]
     Active Substance: PALBOCICLIB
     Route: 065
  6. PERJETA [Suspect]
     Active Substance: PERTUZUMAB
     Indication: HER-2 POSITIVE BREAST CANCER
     Route: 065
     Dates: start: 201502
  7. ARIMIDEX [Concomitant]
     Active Substance: ANASTROZOLE
     Route: 065
  8. FLUOROURACIL. [Concomitant]
     Active Substance: FLUOROURACIL
  9. EPIRUBICIN [Concomitant]
     Active Substance: EPIRUBICIN

REACTIONS (11)
  - Skin mass [Unknown]
  - Fatigue [Unknown]
  - Palpitations [Unknown]
  - Lymphadenopathy [Unknown]
  - Mastitis [Unknown]
  - Incision site erythema [Unknown]
  - Diarrhoea [Not Recovered/Not Resolved]
  - Hot flush [Unknown]
  - Goitre [Unknown]
  - Breast tenderness [Unknown]
  - Post procedural oedema [Unknown]
